FAERS Safety Report 25366497 (Version 3)
Quarter: 2025Q4

REPORT INFORMATION
  Report Type: Spontaneous
  Country: JP (occurrence: JP)
  Receive Date: 20250528
  Receipt Date: 20251009
  Transmission Date: 20260118
  Serious: Yes (Hospitalization)
  Sender: ROCHE
  Company Number: JP-CHUGAI-2025016440

PATIENT
  Age: 48 Year
  Sex: Female
  Weight: 44.3 kg

DRUGS (4)
  1. ENSPRYNG [Suspect]
     Active Substance: SATRALIZUMAB-MWGE
     Indication: Neuromyelitis optica spectrum disorder
     Dosage: 120 MILLIGRAM, ONCE/4WEEKS
     Route: 050
     Dates: start: 20241022
  2. PREDNISOLONE [Concomitant]
     Active Substance: PREDNISOLONE
     Dates: start: 20130830
  3. LANSOPRAZOLE [Concomitant]
     Active Substance: LANSOPRAZOLE
     Dates: start: 20130723
  4. ACTONEL [Concomitant]
     Active Substance: RISEDRONATE SODIUM
     Dates: start: 20130913

REACTIONS (1)
  - Diverticulitis [Recovered/Resolved]

NARRATIVE: CASE EVENT DATE: 20250418
